FAERS Safety Report 25964637 (Version 1)
Quarter: 2025Q4

REPORT INFORMATION
  Report Type: Spontaneous
  Country: JP (occurrence: JP)
  Receive Date: 20251027
  Receipt Date: 20251027
  Transmission Date: 20260117
  Serious: Yes (Hospitalization)
  Sender: MERCK SHARP & DOHME LLC
  Company Number: JP-009507513-2341932

PATIENT
  Sex: Female

DRUGS (2)
  1. SOTATERCEPT [Suspect]
     Active Substance: SOTATERCEPT
     Indication: Pulmonary arterial hypertension
     Dosage: DOSING WAS CHECKED ONLY FOR THE FIRST TIME, AND IT WAS UNKNOWN BECAUSE THE PATIENT DID NOT VISIT ...
     Route: 058
     Dates: start: 20250911
  2. ADCIRCA [Concomitant]
     Active Substance: TADALAFIL
     Indication: Pulmonary arterial hypertension
     Route: 048

REACTIONS (1)
  - Panic reaction [Unknown]

NARRATIVE: CASE EVENT DATE: 20250901
